FAERS Safety Report 7002228-3 (Version None)
Quarter: 2010Q3

REPORT INFORMATION
  Report Type: 
  Country: None (occurrence: None)
  Receive Date: 20100920
  Receipt Date: 20070827
  Transmission Date: 20110219
  Serious: Yes (Other)
  Sender: FDA-Public Use
  Company Number: US-ASTRAZENECA-2006UW11562

PATIENT
  Age: 16245 Day
  Sex: Female
  Weight: 85.3 kg

DRUGS (15)
  1. SEROQUEL [Suspect]
     Indication: BIPOLAR DISORDER
     Route: 048
     Dates: start: 19990201
  2. SEROQUEL [Suspect]
     Indication: SCHIZOPHRENIA
     Route: 048
     Dates: start: 19990201
  3. SEROQUEL [Suspect]
     Route: 048
     Dates: start: 20010608
  4. SEROQUEL [Suspect]
     Route: 048
     Dates: start: 20010608
  5. GLUCOPHAGE [Concomitant]
     Dosage: 500MG-2000MG
     Route: 048
     Dates: start: 20000101
  6. AMARYL [Concomitant]
     Route: 048
     Dates: start: 20000101
  7. PYRIDOXINE HCL [Concomitant]
     Dates: start: 20010101
  8. AVANDIA [Concomitant]
     Dosage: 4MG-8MG
     Dates: start: 20010101
  9. RISPERDAL [Concomitant]
     Dosage: 2MG-3MG DAILY
     Route: 048
     Dates: start: 20000101
  10. PROZAC [Concomitant]
     Route: 048
     Dates: start: 20000101
  11. CLONAZEPAM [Concomitant]
     Dates: start: 20010101
  12. LIPITOR [Concomitant]
     Route: 048
     Dates: start: 20000101
  13. MONOPRIL-HCT [Concomitant]
     Dosage: 20MG, 10/12.5MG
     Dates: start: 20000101
  14. ALLEGRA [Concomitant]
     Route: 048
     Dates: start: 20000101
  15. DEPAKOTE [Concomitant]
     Route: 048
     Dates: start: 20000101

REACTIONS (2)
  - DIABETES MELLITUS [None]
  - DIABETIC COMA [None]
